FAERS Safety Report 5087917-2 (Version None)
Quarter: 2006Q3

REPORT INFORMATION
  Report Type: 
  Country: None (occurrence: None)
  Receive Date: 20060821
  Receipt Date: 20060804
  Transmission Date: 20061208
  Serious: Yes (Hospitalization, Other)
  Sender: FDA-Public Use
  Company Number: TRP_0843_2006

PATIENT
  Age: 54 Year
  Sex: Female

DRUGS (6)
  1. RIBASPHERE [Suspect]
     Indication: HEPATITIS C
     Dosage: DF UNK PO
     Route: 048
     Dates: start: 20060705
  2. PEG-INTRON [Suspect]
     Indication: HEPATITIS C
     Dosage: 0.5 ML QWK SC
     Route: 058
     Dates: start: 20060705
  3. MULTIVITAMIN [Concomitant]
  4. NORVASC [Concomitant]
  5. RISPERDAL [Concomitant]
  6. SEROQUEL [Concomitant]

REACTIONS (8)
  - ABDOMINAL PAIN UPPER [None]
  - CRYING [None]
  - DEPRESSION [None]
  - DRUG ABUSER [None]
  - FEELING JITTERY [None]
  - INSOMNIA [None]
  - LOWER RESPIRATORY TRACT INFECTION [None]
  - MALAISE [None]
